FAERS Safety Report 22119292 (Version 1)
Quarter: 2023Q1

REPORT INFORMATION
  Report Type: Report from Study
  Country: US (occurrence: US)
  Receive Date: 20230321
  Receipt Date: 20230321
  Transmission Date: 20230417
  Serious: No
  Sender: FDA-Public Use
  Company Number: US-002147023-NVSC2023US063922

PATIENT
  Sex: Female

DRUGS (1)
  1. RYDAPT [Suspect]
     Active Substance: MIDOSTAURIN
     Indication: Product used for unknown indication
     Dosage: 25 MG, TID (TAKE 3 CAPSULES BY MOUTH EVERY 12HRS, AFTER FOOD)
     Route: 048

REACTIONS (1)
  - Urinary tract infection [Unknown]
